FAERS Safety Report 4886062-6 (Version None)
Quarter: 2006Q1

REPORT INFORMATION
  Report Type: 
  Country: None (occurrence: None)
  Receive Date: 20060117
  Receipt Date: 20060105
  Transmission Date: 20060701
  Serious: Yes (Hospitalization)
  Sender: FDA-Public Use
  Company Number: 200510975BFR

PATIENT
  Age: 18 Year
  Sex: Female
  Weight: 35 kg

DRUGS (13)
  1. CIPROFLOXACIN [Suspect]
     Indication: ESCHERICHIA SEPSIS
     Dosage: 800 MG, TOTAL DAILY, INTRAVENOUS
     Route: 042
     Dates: start: 20051201, end: 20051204
  2. CIPROFLOXACIN [Suspect]
     Indication: SUPERINFECTION LUNG
     Dosage: 800 MG, TOTAL DAILY, INTRAVENOUS
     Route: 042
     Dates: start: 20051201, end: 20051204
  3. CIPROFLOXACIN [Suspect]
     Indication: URINARY TRACT INFECTION
     Dosage: 800 MG, TOTAL DAILY, INTRAVENOUS
     Route: 042
     Dates: start: 20051201, end: 20051204
  4. TAZOCILLINE [Suspect]
     Indication: ESCHERICHIA SEPSIS
     Dosage: 4 G, TOTAL DAILY, INTRAVENOUS
     Route: 042
     Dates: start: 20051201, end: 20051204
  5. TAZOCILLINE [Suspect]
     Indication: SUPERINFECTION LUNG
     Dosage: 4 G, TOTAL DAILY, INTRAVENOUS
     Route: 042
     Dates: start: 20051201, end: 20051204
  6. TAZOCILLINE [Suspect]
     Indication: URINARY TRACT INFECTION
     Dosage: 4 G, TOTAL DAILY, INTRAVENOUS
     Route: 042
     Dates: start: 20051201, end: 20051204
  7. MORPHINE [Concomitant]
  8. EUPRESSYL [Concomitant]
  9. LASILIX [Concomitant]
  10. CORDARONE [Concomitant]
  11. ASPEGIC [Concomitant]
  12. SPECIAFOLDINE [Concomitant]
  13. NEXIUM [Concomitant]

REACTIONS (7)
  - AORTIC DISSECTION [None]
  - BASOPHIL COUNT ABNORMAL [None]
  - CHEILITIS [None]
  - PERITONEAL HAEMORRHAGE [None]
  - PURPURA [None]
  - RASH MACULAR [None]
  - VIRAL INFECTION [None]
